FAERS Safety Report 7425969-2 (Version None)
Quarter: 2011Q2

REPORT INFORMATION
  Report Type: 
  Country: None (occurrence: None)
  Receive Date: 20110420
  Receipt Date: 20110412
  Transmission Date: 20111010
  Serious: Yes (Hospitalization)
  Sender: FDA-Public Use
  Company Number: FR-ROCHE-770910

PATIENT
  Sex: Male
  Weight: 66 kg

DRUGS (4)
  1. PROGRAF [Concomitant]
  2. MYCOPHENOLATE MOFETIL [Suspect]
     Indication: RENAL TRANSPLANT
     Route: 048
     Dates: start: 20100628
  3. EVEROLIMUS [Suspect]
     Indication: RENAL TRANSPLANT
     Dosage: PERMANENTLY DISCONTINUED
     Route: 048
     Dates: start: 20100702, end: 20110408
  4. PREDNISONE [Suspect]
     Indication: RENAL TRANSPLANT
     Dosage: DATE OF LAST DOSE PRIOR TO SAE: 30 JANUARY 2011
     Route: 048
     Dates: start: 20100706

REACTIONS (1)
  - TRANSPLANT REJECTION [None]
